FAERS Safety Report 5047102-7 (Version None)
Quarter: 2006Q3

REPORT INFORMATION
  Report Type: 
  Country: None (occurrence: None)
  Receive Date: 20060703
  Receipt Date: 20060621
  Transmission Date: 20061208
  Serious: Yes (Hospitalization)
  Sender: FDA-Public Use
  Company Number: 2006051115

PATIENT
  Sex: Female

DRUGS (4)
  1. NEURONTIN [Suspect]
     Indication: FIBROMYALGIA
     Dates: end: 20021101
  2. NEURONTIN [Suspect]
     Indication: PAIN
     Dates: end: 20021101
  3. NEURONTIN [Suspect]
     Indication: FIBROMYALGIA
     Dates: start: 19990801
  4. NEURONTIN [Suspect]
     Indication: PAIN
     Dates: start: 19990801

REACTIONS (9)
  - ANXIETY [None]
  - BIPOLAR DISORDER [None]
  - DELUSION [None]
  - DEPRESSION [None]
  - DRUG INEFFECTIVE [None]
  - OVERDOSE [None]
  - SCHIZOPHRENIA, PARANOID TYPE [None]
  - SUICIDAL IDEATION [None]
  - SUICIDE ATTEMPT [None]
